FAERS Safety Report 24565099 (Version 2)
Quarter: 2024Q4

REPORT INFORMATION
  Report Type: Spontaneous
  Country: US (occurrence: US)
  Receive Date: 20241030
  Receipt Date: 20241106
  Transmission Date: 20250115
  Serious: Yes (Life-Threatening, Hospitalization)
  Sender: PFIZER
  Company Number: US-MLMSERVICE-20241021-PI231431-00271-1

PATIENT
  Age: 36 Year
  Sex: Male

DRUGS (8)
  1. METHYLPREDNISOLONE ACETATE [Suspect]
     Active Substance: METHYLPREDNISOLONE ACETATE
     Indication: Still^s disease
     Dosage: 60 MG TWICE DAILY
     Route: 051
     Dates: start: 2023, end: 2023
  2. PREDNISONE [Suspect]
     Active Substance: PREDNISONE
     Indication: Still^s disease
     Dosage: UNK
     Dates: start: 2023, end: 2023
  3. PREDNISONE [Suspect]
     Active Substance: PREDNISONE
     Dosage: 60 MG, DAILY
     Route: 048
     Dates: start: 2023, end: 2023
  4. PREDNISONE [Suspect]
     Active Substance: PREDNISONE
     Dosage: 40 MG, DAILY
     Route: 048
  5. PREDNISOLONE [Suspect]
     Active Substance: PREDNISOLONE
     Indication: Still^s disease
     Dosage: 60 MG, 1X/DAY, HIGH DOSES
     Route: 048
     Dates: start: 2023, end: 2023
  6. DEXAMETHASONE [Suspect]
     Active Substance: DEXAMETHASONE
     Indication: Still^s disease
     Dosage: 10 MG, 2X/DAY
     Route: 048
     Dates: start: 2023, end: 2023
  7. AZITHROMYCIN [Concomitant]
     Active Substance: AZITHROMYCIN
     Indication: Sinusitis
     Dosage: UNK
     Dates: start: 2023
  8. COLCHICINE [Concomitant]
     Active Substance: COLCHICINE
     Indication: Myopericarditis
     Dosage: 0.6 MG, DAILY
     Route: 048
     Dates: start: 2023

REACTIONS (2)
  - Substance-induced psychotic disorder [Recovering/Resolving]
  - Off label use [Unknown]

NARRATIVE: CASE EVENT DATE: 20230101
